FAERS Safety Report 4581673-X (Version None)
Quarter: 2005Q1

REPORT INFORMATION
  Report Type: 
  Country: None (occurrence: None)
  Receive Date: 20050214
  Receipt Date: 20041213
  Transmission Date: 20050727
  Serious: No
  Sender: FDA-Public Use
  Company Number: US-GLAXOSMITHKLINE-A0537297A

PATIENT
  Age: 42 Year
  Sex: Male
  Weight: 77.7 kg

DRUGS (2)
  1. LAMICTAL [Suspect]
     Indication: BIPOLAR DISORDER
     Dosage: 150MG AT NIGHT
     Route: 048
     Dates: start: 20020101
  2. LITHIUM [Suspect]
     Indication: BIPOLAR DISORDER
     Dosage: 900MG AT NIGHT
     Dates: start: 20010101

REACTIONS (1)
  - ASTHENIA [None]
